FAERS Safety Report 18865901 (Version 1)
Quarter: 2021Q1

REPORT INFORMATION
  Report Type: Spontaneous
  Country: US (occurrence: US)
  Receive Date: 20210208
  Receipt Date: 20210208
  Transmission Date: 20210420
  Serious: Yes (Death)
  Sender: FDA-Public Use
  Company Number: None

PATIENT
  Age: 72 Year
  Sex: Male

DRUGS (2)
  1. BOTOX [Suspect]
     Active Substance: ONABOTULINUMTOXINA
     Indication: FACIAL SPASM
     Dosage: ?        DOSE: 100 UNIT SDV  OTHER FREQUENCY:Q3M;OTHER ROUTE:IM?
     Dates: start: 20181101
  2. BOTOX [Suspect]
     Active Substance: ONABOTULINUMTOXINA
     Indication: CLONUS
     Dosage: ?        DOSE: 100 UNIT SDV  OTHER FREQUENCY:Q3M;OTHER ROUTE:IM?
     Dates: start: 20181101

REACTIONS (1)
  - Death [None]

NARRATIVE: CASE EVENT DATE: 20210126
